FAERS Safety Report 15773361 (Version 1)
Quarter: 2018Q4

REPORT INFORMATION
  Report Type: Spontaneous
  Country: US (occurrence: US)
  Receive Date: 20181228
  Receipt Date: 20181228
  Transmission Date: 20190205
  Serious: Yes (Hospitalization)
  Sender: FDA-Public Use
  Company Number: US-PFIZER INC-2797903

PATIENT
  Age: 49 Year
  Sex: Male

DRUGS (3)
  1. ATROPINE. [Concomitant]
     Active Substance: ATROPINE
     Indication: BRADYCARDIA
     Dosage: 0.50 MG (2 DOSES), NOT REPORTED
     Route: 042
  2. EPINEPHRINE. [Suspect]
     Active Substance: EPINEPHRINE
     Indication: BRADYCARDIA
     Dosage: 0.30 MG (1:10000)
     Route: 040
  3. ATROPINE. [Concomitant]
     Active Substance: ATROPINE
     Dosage: 0.5 MG, UNK

REACTIONS (2)
  - Stress cardiomyopathy [Recovered/Resolved]
  - Overdose [Recovered/Resolved]
